FAERS Safety Report 8182994-4 (Version None)
Quarter: 2012Q1

REPORT INFORMATION
  Report Type: 
  Country: None (occurrence: None)
  Receive Date: 20120305
  Receipt Date: 20111118
  Transmission Date: 20120608
  Serious: No
  Sender: FDA-Public Use
  Company Number: US-BRISTOL-MYERS SQUIBB COMPANY-16239881

PATIENT
  Sex: Male

DRUGS (1)
  1. KOMBIGLYZE XR [Suspect]
     Indication: TYPE 2 DIABETES MELLITUS
     Dosage: 1 DF: 2.5MG/1000MG

REACTIONS (2)
  - DIZZINESS [None]
  - FLUSHING [None]
